FAERS Safety Report 11392480 (Version 3)
Quarter: 2015Q4

REPORT INFORMATION
  Report Type: Spontaneous
  Country: JP (occurrence: JP)
  Receive Date: 20150818
  Receipt Date: 20151020
  Transmission Date: 20160304
  Serious: Yes (Hospitalization, Other)
  Sender: FDA-Public Use
  Company Number: PHJP2015JP013802

PATIENT
  Age: 10 Year
  Sex: Male
  Weight: 30 kg

DRUGS (17)
  1. NEORAL [Suspect]
     Active Substance: CYCLOSPORINE
     Dosage: 60 MG, QD
     Route: 048
     Dates: start: 20150726, end: 20150728
  2. NEORAL [Suspect]
     Active Substance: CYCLOSPORINE
     Dosage: 60 MG, QD (DAILY)
     Route: 048
     Dates: start: 20150731
  3. KAYTWO [Concomitant]
     Active Substance: MENATETRENONE
     Indication: PRODUCT USED FOR UNKNOWN INDICATION
     Dosage: UNK
     Route: 065
  4. NEORAL [Suspect]
     Active Substance: CYCLOSPORINE
     Dosage: 80 MG, QD
     Route: 048
     Dates: start: 20150812
  5. SANDIMMUN INFUSION [Suspect]
     Active Substance: CYCLOSPORINE
     Indication: JUVENILE IDIOPATHIC ARTHRITIS
     Dosage: 1 MG/KG, QD
     Route: 041
     Dates: start: 20150710, end: 20150726
  6. ATELEC [Concomitant]
     Active Substance: CILNIDIPINE
     Indication: PRODUCT USED FOR UNKNOWN INDICATION
     Dosage: UNK
     Route: 065
  7. GASTER [Concomitant]
     Active Substance: FAMOTIDINE
     Indication: PRODUCT USED FOR UNKNOWN INDICATION
     Dosage: UNK
     Route: 065
  8. NEORAL [Suspect]
     Active Substance: CYCLOSPORINE
     Indication: JUVENILE IDIOPATHIC ARTHRITIS
     Dosage: 80 MG, (PER DAY IN 2 DIVIDED DOSES)
     Route: 048
  9. ALFAROL [Concomitant]
     Active Substance: ALFACALCIDOL
     Indication: PRODUCT USED FOR UNKNOWN INDICATION
     Dosage: UNK
     Route: 065
  10. ACICLOVIR [Concomitant]
     Active Substance: ACYCLOVIR
     Indication: PRODUCT USED FOR UNKNOWN INDICATION
     Dosage: UNK
     Route: 065
  11. FUNGUARD [Concomitant]
     Active Substance: MICAFUNGIN SODIUM
     Indication: PRODUCT USED FOR UNKNOWN INDICATION
     Dosage: UNK
     Route: 065
     Dates: start: 20150718, end: 20150810
  12. SOLU-MEDROL [Concomitant]
     Active Substance: METHYLPREDNISOLONE SODIUM SUCCINATE
     Indication: PRODUCT USED FOR UNKNOWN INDICATION
     Dosage: 24 MG, UNK
     Route: 065
     Dates: start: 20150729
  13. DENOSINE ^FAREAST^ [Concomitant]
     Indication: PRODUCT USED FOR UNKNOWN INDICATION
     Dosage: UNK
     Route: 065
  14. ZOSYN [Concomitant]
     Active Substance: PIPERACILLIN SODIUM\TAZOBACTAM SODIUM
     Indication: PRODUCT USED FOR UNKNOWN INDICATION
     Dosage: UNK
     Route: 065
     Dates: start: 20150722, end: 20150809
  15. LASIX [Concomitant]
     Active Substance: FUROSEMIDE
     Indication: PRODUCT USED FOR UNKNOWN INDICATION
     Dosage: UNK
     Route: 065
  16. ACTEMRA [Concomitant]
     Active Substance: TOCILIZUMAB
     Indication: JUVENILE IDIOPATHIC ARTHRITIS
     Dosage: UNK
     Route: 065
  17. NEORAL [Suspect]
     Active Substance: CYCLOSPORINE
     Dosage: 40 MG, QD
     Route: 048
     Dates: start: 20150729, end: 20150730

REACTIONS (10)
  - White blood cell count decreased [Recovered/Resolved]
  - Lymphocyte percentage increased [Unknown]
  - Blood triglycerides increased [Recovering/Resolving]
  - Anaemia [Unknown]
  - Off label use [Unknown]
  - Cytomegalovirus infection [Recovered/Resolved]
  - Immunosuppressant drug level increased [Recovering/Resolving]
  - Neutrophil percentage decreased [Recovered/Resolved]
  - Histiocytosis haematophagic [Recovered/Resolved]
  - Juvenile idiopathic arthritis [Unknown]

NARRATIVE: CASE EVENT DATE: 20150618
